FAERS Safety Report 9289551 (Version 2)
Quarter: 2013Q4

REPORT INFORMATION
  Report Type: Spontaneous
  Country: US (occurrence: US)
  Receive Date: 20130515
  Receipt Date: 20131028
  Transmission Date: 20140711
  Serious: Yes (Death, Hospitalization, Other)
  Sender: FDA-Public Use
  Company Number: US-B.I. PHARMACEUTICALS,INC./RIDGEFIELD-2013-BI-13319BP

PATIENT
  Age: 88 Year
  Sex: Male
  Weight: 82.75 kg

DRUGS (14)
  1. PRADAXA [Suspect]
     Indication: ANTICOAGULANT THERAPY
     Dosage: 150 MG
     Route: 048
     Dates: start: 20111224, end: 20120131
  2. AMIODARONE [Concomitant]
     Dosage: 200 MG
  3. HYDROCODONE/APAP [Concomitant]
  4. METOPROLOL [Concomitant]
     Dosage: 100 MG
  5. FUROSEMIDE [Concomitant]
     Dosage: 40 MG
  6. ALBUTEROL [Concomitant]
  7. PRILOSEC [Concomitant]
     Dosage: 20 MG
  8. BENAZEPRIL [Concomitant]
     Dosage: 40 MG
  9. VENTOLIN [Concomitant]
     Route: 055
  10. CIPRO [Concomitant]
  11. CLEOCIN [Concomitant]
  12. AMOXICILLIN [Concomitant]
  13. LASIX [Concomitant]
  14. LOPRESSOR [Concomitant]

REACTIONS (8)
  - Gastrointestinal haemorrhage [Fatal]
  - Haemorrhagic anaemia [Unknown]
  - Coagulopathy [Recovered/Resolved]
  - Renal failure acute [Unknown]
  - Peritonitis [Unknown]
  - Small intestinal perforation [Unknown]
  - Abdominal abscess [Unknown]
  - Functional gastrointestinal disorder [Unknown]
